FAERS Safety Report 7367629-2 (Version None)
Quarter: 2011Q1

REPORT INFORMATION
  Report Type: 
  Country: None (occurrence: None)
  Receive Date: 20110322
  Receipt Date: 20110318
  Transmission Date: 20110831
  Serious: Yes (Hospitalization, Other)
  Sender: FDA-Public Use
  Company Number: GB-ABBOTT-11P-167-0712872-00

PATIENT
  Sex: Male

DRUGS (1)
  1. HUMIRA [Suspect]
     Indication: CROHN'S DISEASE
     Dosage: START DATE: A FEW WEEKS
     Dates: start: 20110301

REACTIONS (4)
  - BEHCET'S SYNDROME [None]
  - FOLLICULITIS [None]
  - GENITAL ULCERATION [None]
  - MOUTH ULCERATION [None]
